FAERS Safety Report 8346569-6 (Version None)
Quarter: 2012Q2

REPORT INFORMATION
  Report Type: 
  Country: None (occurrence: None)
  Receive Date: 20120509
  Receipt Date: 20120502
  Transmission Date: 20120825
  Serious: Yes (Hospitalization)
  Sender: FDA-Public Use
  Company Number: PHHY2012FR038156

PATIENT
  Sex: Female

DRUGS (1)
  1. LAMISIL [Suspect]
     Indication: ONYCHOMYCOSIS
     Route: 048
     Dates: start: 20120201, end: 20120301

REACTIONS (8)
  - C-REACTIVE PROTEIN INCREASED [None]
  - RASH [None]
  - OEDEMA PERIPHERAL [None]
  - PROTEINURIA [None]
  - PYREXIA [None]
  - MUSCULOSKELETAL PAIN [None]
  - EOSINOPHILIA [None]
  - CYTOLYTIC HEPATITIS [None]
